FAERS Safety Report 9751304 (Version 1)
Quarter: 2013Q4

REPORT INFORMATION
  Report Type: Spontaneous
  Country: US (occurrence: US)
  Receive Date: 20131212
  Receipt Date: 20131212
  Transmission Date: 20140711
  Serious: No
  Sender: FDA-Public Use
  Company Number: US-BIOGENIDEC-2013BI097393

PATIENT
  Age: 49 Year
  Sex: Female

DRUGS (6)
  1. TECFIDERA [Suspect]
     Indication: MULTIPLE SCLEROSIS
     Route: 048
  2. TECFIDERA [Suspect]
     Indication: MULTIPLE SCLEROSIS
     Route: 048
  3. IBUPROFEN [Concomitant]
  4. ADVAIR DISKUS [Concomitant]
  5. PROZAC [Concomitant]
  6. ALBUTEROL [Concomitant]

REACTIONS (3)
  - Dizziness [Not Recovered/Not Resolved]
  - Vision blurred [Unknown]
  - Flushing [Unknown]
